APPROVED DRUG PRODUCT: INDOMETHACIN
Active Ingredient: INDOMETHACIN
Strength: 25MG
Dosage Form/Route: CAPSULE;ORAL
Application: A091240 | Product #001 | TE Code: AB
Applicant: HETERO LABS LTD UNIT III
Approved: Apr 12, 2011 | RLD: No | RS: No | Type: RX